FAERS Safety Report 8584223-6 (Version None)
Quarter: 2012Q3

REPORT INFORMATION
  Report Type: 
  Country: None (occurrence: None)
  Receive Date: 20120810
  Receipt Date: 20120807
  Transmission Date: 20120928
  Serious: Yes (Other)
  Sender: FDA-Public Use
  Company Number: US-AMGEN-USASP2012048056

PATIENT
  Age: 60 Year
  Sex: Male
  Weight: 88.435 kg

DRUGS (1)
  1. ENBREL [Suspect]
     Indication: PSORIASIS
     Dosage: 50 MG, 2 TIMES/WK
     Route: 058
     Dates: start: 20060828, end: 20111027

REACTIONS (2)
  - NON-HODGKIN'S LYMPHOMA [None]
  - PSORIASIS [None]
